FAERS Safety Report 4518826-2 (Version None)
Quarter: 2004Q4

REPORT INFORMATION
  Report Type: 
  Country: None (occurrence: None)
  Receive Date: 20041206
  Receipt Date: 20041124
  Transmission Date: 20050328
  Serious: Yes (Hospitalization)
  Sender: FDA-Public Use
  Company Number: DE-JNJFOC-20041106110

PATIENT
  Age: 21 Year
  Sex: Male

DRUGS (4)
  1. REMICADE [Suspect]
     Indication: ANKYLOSING SPONDYLITIS
     Route: 065
  2. URBASON [Concomitant]
     Route: 065
  3. URBASON [Concomitant]
     Route: 065
  4. URBASON [Concomitant]
     Route: 065

REACTIONS (4)
  - CHILLS [None]
  - HYPERTENSION [None]
  - INFUSION RELATED REACTION [None]
  - VOMITING [None]
